FAERS Safety Report 18388638 (Version 1)
Quarter: 2020Q4

REPORT INFORMATION
  Report Type: Spontaneous
  Country: US (occurrence: US)
  Receive Date: 20201015
  Receipt Date: 20201015
  Transmission Date: 20210114
  Serious: No
  Sender: FDA-Public Use
  Company Number: US-TEVA-2020-US-1837947

PATIENT
  Age: 79 Year
  Sex: Female

DRUGS (2)
  1. LORAZEPAM. [Suspect]
     Active Substance: LORAZEPAM
     Route: 065
     Dates: end: 2020
  2. METOCLOPRAMIDE TEVA [Suspect]
     Active Substance: METOCLOPRAMIDE
     Route: 065
     Dates: start: 202002

REACTIONS (2)
  - Muscle spasms [Not Recovered/Not Resolved]
  - Increased appetite [Not Recovered/Not Resolved]

NARRATIVE: CASE EVENT DATE: 2020
